FAERS Safety Report 17188844 (Version 2)
Quarter: 2021Q4

REPORT INFORMATION
  Report Type: Other
  Country: US (occurrence: US)
  Receive Date: 20191222
  Receipt Date: 20211220
  Transmission Date: 20220303
  Serious: Yes (Death, Hospitalization)
  Sender: FDA-Public Use
  Company Number: US-ACORDA-ACO_162637_2019

PATIENT
  Sex: Male

DRUGS (3)
  1. INBRIJA [Suspect]
     Active Substance: LEVODOPA
     Indication: Parkinson^s disease
     Dosage: CONTENTS OF 2 CAPSULES (84 MILLIGRAM), UP TO FIVE TIMES PER DAY PRN
  2. INBRIJA [Suspect]
     Active Substance: LEVODOPA
     Indication: On and off phenomenon
  3. CARBIDOPA\LEVODOPA [Concomitant]
     Active Substance: CARBIDOPA\LEVODOPA
     Indication: Product used for unknown indication
     Dosage: 25/100 MG, THREE TABLETS THREE TIMES DAILY
     Route: 065

REACTIONS (5)
  - Haemorrhage [Fatal]
  - Loss of consciousness [Unknown]
  - Dysarthria [Unknown]
  - Wrong technique in device usage process [Unknown]
  - Device occlusion [Unknown]
